FAERS Safety Report 24162030 (Version 1)
Quarter: 2024Q3

REPORT INFORMATION
  Report Type: Spontaneous
  Country: US (occurrence: US)
  Receive Date: 20240801
  Receipt Date: 20240801
  Transmission Date: 20241017
  Serious: No
  Sender: GLENMARK
  Company Number: US-GLENMARK PHARMACEUTICALS-2024GMK090668

PATIENT

DRUGS (1)
  1. MUPIROCIN [Suspect]
     Active Substance: MUPIROCIN
     Indication: Sinus disorder
     Dosage: UNK
     Route: 045

REACTIONS (3)
  - Product prescribing issue [Unknown]
  - Intercepted product prescribing error [Unknown]
  - Product prescribing error [Unknown]
